FAERS Safety Report 8266413-5 (Version None)
Quarter: 2012Q2

REPORT INFORMATION
  Report Type: 
  Country: None (occurrence: None)
  Receive Date: 20120406
  Receipt Date: 20120402
  Transmission Date: 20120825
  Serious: Yes (Life-Threatening)
  Sender: FDA-Public Use
  Company Number: JP-ABBOTT-12P-087-0921211-00

PATIENT
  Sex: Male
  Weight: 105 kg

DRUGS (7)
  1. SEVOFLURANE [Suspect]
     Indication: SUBARACHNOID HAEMORRHAGE
     Dosage: 2%, 1 IN 1 DAY
     Route: 055
     Dates: start: 20100526, end: 20100526
  2. MIDAZOLAM HCL [Interacting]
     Indication: SUBARACHNOID HAEMORRHAGE
     Dosage: CONTINUOUS
     Route: 042
     Dates: start: 20100525, end: 20100526
  3. DILTIAZEM HCL [Interacting]
     Indication: SUBARACHNOID HAEMORRHAGE
     Dosage: CONTINUOUS
     Route: 042
     Dates: start: 20100525, end: 20100526
  4. VECURONIUM BROMIDE [Concomitant]
     Indication: SUBARACHNOID HAEMORRHAGE
     Route: 042
     Dates: start: 20100526, end: 20100526
  5. FENTANYL [Concomitant]
     Indication: SUBARACHNOID HAEMORRHAGE
     Route: 042
     Dates: start: 20100526, end: 20100526
  6. NICARDIPINE HCL [Interacting]
     Indication: SUBARACHNOID HAEMORRHAGE
     Dosage: CONTINUOUS
     Route: 042
     Dates: start: 20100525, end: 20100526
  7. THIAMYLAL SODIUM [Concomitant]
     Indication: SUBARACHNOID HAEMORRHAGE
     Route: 042
     Dates: start: 20100526, end: 20100526

REACTIONS (4)
  - SINUS ARREST [None]
  - DRUG INTERACTION [None]
  - OVERDOSE [None]
  - CARDIAC ARREST [None]
